FAERS Safety Report 5778753-X (Version None)
Quarter: 2008Q2

REPORT INFORMATION
  Report Type: 
  Country: None (occurrence: None)
  Receive Date: 20080618
  Receipt Date: 20080618
  Transmission Date: 20081010
  Serious: No
  Sender: FDA-Public Use
  Company Number: None

PATIENT
  Age: 20 Year
  Sex: Female
  Weight: 137 kg

DRUGS (5)
  1. FAMOTIDINE [Suspect]
     Indication: PROPHYLAXIS AGAINST GASTROINTESTINAL ULCER
     Dosage: 20MG BID PO
     Route: 048
     Dates: start: 20080522, end: 20080617
  2. ALBUTEROL [Concomitant]
  3. HYDROCHLOROTHIAZIDE [Concomitant]
  4. PRENANTAL MVI -NUTRINATE- [Concomitant]
  5. LORTAB [Concomitant]

REACTIONS (2)
  - APHTHOUS STOMATITIS [None]
  - ORAL CANDIDIASIS [None]
